FAERS Safety Report 7544028-1 (Version None)
Quarter: 2011Q2

REPORT INFORMATION
  Report Type: 
  Country: None (occurrence: None)
  Receive Date: 20110613
  Receipt Date: 20050217
  Transmission Date: 20111010
  Serious: Yes (Other)
  Sender: FDA-Public Use
  Company Number: PHFR2005GB00764

PATIENT
  Sex: Female

DRUGS (1)
  1. CLOZAPINE [Suspect]
     Indication: SCHIZOPHRENIA
     Route: 048
     Dates: start: 20050127

REACTIONS (7)
  - URINARY TRACT INFECTION [None]
  - MALAISE [None]
  - ANTIBIOTIC RESISTANT STAPHYLOCOCCUS TEST [None]
  - LYMPHOCYTE COUNT DECREASED [None]
  - MOBILITY DECREASED [None]
  - SLOW RESPONSE TO STIMULI [None]
  - DECUBITUS ULCER [None]
